FAERS Safety Report 8436481-6 (Version None)
Quarter: 2012Q2

REPORT INFORMATION
  Report Type: 
  Country: None (occurrence: None)
  Receive Date: 20120614
  Receipt Date: 20120607
  Transmission Date: 20120825
  Serious: Yes (Death)
  Sender: FDA-Public Use
  Company Number: US-GLAXOSMITHKLINE-A0794770A

PATIENT
  Age: 64 Year
  Sex: Male

DRUGS (1)
  1. AVANDIA [Suspect]
     Indication: TYPE 2 DIABETES MELLITUS
     Dosage: 8MG PER DAY
     Route: 048
     Dates: start: 20020101, end: 20060222

REACTIONS (5)
  - MYOCARDIAL INFARCTION [None]
  - LEFT VENTRICULAR FAILURE [None]
  - HEART INJURY [None]
  - CORONARY ARTERY DISEASE [None]
  - SYNCOPE [None]
